FAERS Safety Report 4465733-X (Version None)
Quarter: 2004Q3

REPORT INFORMATION
  Report Type: 
  Country: None (occurrence: None)
  Receive Date: 20040928
  Receipt Date: 20040928
  Transmission Date: 20050211
  Serious: Yes (Other)
  Sender: FDA-Public Use
  Company Number: None

PATIENT
  Sex: Female
  Weight: 94 kg

DRUGS (2)
  1. CUBICIN [Suspect]
     Indication: SKIN ULCER
     Dosage: 400MG IV DAILY
     Route: 042
     Dates: start: 20040831, end: 20040919
  2. CUBICIN [Suspect]
     Indication: STAPHYLOCOCCAL INFECTION
     Dosage: 400MG IV DAILY
     Route: 042
     Dates: start: 20040831, end: 20040919

REACTIONS (5)
  - ASTHENIA [None]
  - DIZZINESS [None]
  - HYPERHIDROSIS [None]
  - INFUSION RELATED REACTION [None]
  - VOMITING [None]
